FAERS Safety Report 20663752 (Version 1)
Quarter: 2022Q2

REPORT INFORMATION
  Report Type: Spontaneous
  Country: GB (occurrence: GB)
  Receive Date: 20220401
  Receipt Date: 20220401
  Transmission Date: 20220721
  Serious: Yes (Hospitalization)
  Sender: FDA-Public Use
  Company Number: GB-ROCHE-3048873

PATIENT
  Age: 45 Year
  Sex: Female

DRUGS (26)
  1. DOCETAXEL [Suspect]
     Active Substance: DOCETAXEL
     Indication: Breast cancer metastatic
     Dosage: UNIT DOSE : 120 MG
     Route: 042
     Dates: start: 20150804, end: 20151117
  2. EXEMESTANE [Suspect]
     Active Substance: EXEMESTANE
     Indication: Breast cancer metastatic
     Dosage: 25 MILLIGRAM DAILY;
     Route: 048
     Dates: start: 20150518
  3. BONVIVA [Suspect]
     Active Substance: IBANDRONATE SODIUM
     Indication: Metastases to bone
     Dosage: 50 MILLIGRAM DAILY;
     Route: 048
     Dates: start: 20150518
  4. HERCEPTIN [Suspect]
     Active Substance: TRASTUZUMAB
     Indication: Breast cancer metastatic
     Dosage: 483 MILLIGRAM DAILY;
     Route: 042
     Dates: start: 20150803, end: 20150803
  5. HERCEPTIN [Suspect]
     Active Substance: TRASTUZUMAB
     Dosage: 600 MILLIGRAM DAILY; LOADING DOSE
     Route: 042
     Dates: start: 20151217, end: 20160308
  6. PERJETA [Suspect]
     Active Substance: PERTUZUMAB
     Indication: Breast cancer metastatic
     Dosage: ONE CYCLE (LOADING DOSE)
     Route: 042
  7. PERJETA [Suspect]
     Active Substance: PERTUZUMAB
     Dosage: 420 MILLIGRAM DAILY; MAINTAINANCE DOSE
     Route: 042
     Dates: start: 20160715
  8. PERJETA [Suspect]
     Active Substance: PERTUZUMAB
     Dosage: UNIT DOSE : 420 MG
     Route: 042
     Dates: start: 20151217, end: 20160308
  9. PERJETA [Suspect]
     Active Substance: PERTUZUMAB
     Dosage: LOADING DOSE, UNIT DOSE : 840 MG
     Route: 042
     Dates: start: 20160623, end: 20160623
  10. PERJETA [Suspect]
     Active Substance: PERTUZUMAB
     Dosage: MAINTAINANCE DOSE, UNIT DOSE : 420 MG
     Route: 042
     Dates: start: 20150825, end: 20151117
  11. TRASTUZUMAB [Suspect]
     Active Substance: TRASTUZUMAB
     Indication: Breast cancer metastatic
     Dosage: UNIT DOSE : 600 MG
     Route: 058
     Dates: start: 20150825, end: 20151117
  12. TRASTUZUMAB [Suspect]
     Active Substance: TRASTUZUMAB
     Route: 058
     Dates: end: 20160308
  13. TRASTUZUMAB [Suspect]
     Active Substance: TRASTUZUMAB
     Dosage: UNIT DOSE : 600 MG
     Route: 058
     Dates: start: 20160623
  14. TRASTUZUMAB [Suspect]
     Active Substance: TRASTUZUMAB
     Dosage: 5313 MILLIGRAM DAILY;
     Route: 042
     Dates: start: 20150803
  15. HYALURONIDASE (HUMAN RECOMBINANT) [Suspect]
     Active Substance: HYALURONIDASE (HUMAN RECOMBINANT)
     Indication: Breast cancer metastatic
     Dosage: UNIT DOSE : 600 MG
     Route: 058
     Dates: start: 20160623
  16. HYALURONIDASE (HUMAN RECOMBINANT) [Suspect]
     Active Substance: HYALURONIDASE (HUMAN RECOMBINANT)
     Route: 058
     Dates: end: 20160308
  17. HYALURONIDASE (HUMAN RECOMBINANT) [Suspect]
     Active Substance: HYALURONIDASE (HUMAN RECOMBINANT)
     Dosage: UNIT DOSE : 600 MG
     Route: 058
     Dates: start: 20150825, end: 20151117
  18. BISOPROLOL [Concomitant]
     Active Substance: BISOPROLOL
  19. AMOXICILLIN\CLAVULANATE POTASSIUM [Concomitant]
     Active Substance: AMOXICILLIN\CLAVULANATE POTASSIUM
  20. DENOSUMAB [Concomitant]
     Active Substance: DENOSUMAB
     Route: 065
     Dates: start: 20160127
  21. DEXAMETHASONE [Concomitant]
     Active Substance: DEXAMETHASONE
     Route: 065
     Dates: start: 20150803
  22. GENTAMICIN [Concomitant]
     Active Substance: GENTAMICIN
  23. MEROPENEM [Concomitant]
     Active Substance: MEROPENEM
  24. ACETAMINOPHEN [Concomitant]
     Active Substance: ACETAMINOPHEN
  25. RAMIPRIL [Concomitant]
     Active Substance: RAMIPRIL
  26. PIPERACILLIN SODIUM\TAZOBACTAM SODIUM [Concomitant]
     Active Substance: PIPERACILLIN SODIUM\TAZOBACTAM SODIUM

REACTIONS (9)
  - Epistaxis [Recovered/Resolved]
  - Lymphoedema [Recovered/Resolved]
  - Ejection fraction decreased [Recovered/Resolved]
  - Gastrooesophageal reflux disease [Recovered/Resolved]
  - Fatigue [Recovered/Resolved]
  - Influenza like illness [Recovered/Resolved]
  - Mucosal inflammation [Recovered/Resolved]
  - Anaemia [Recovered/Resolved]
  - Gingival swelling [Recovered/Resolved]

NARRATIVE: CASE EVENT DATE: 20150809
